FAERS Safety Report 21231371 (Version 1)
Quarter: 2022Q3

REPORT INFORMATION
  Report Type: Spontaneous
  Country: US (occurrence: US)
  Receive Date: 20220819
  Receipt Date: 20220819
  Transmission Date: 20221027
  Serious: No
  Sender: FDA-Public Use
  Company Number: US-CIPLA LTD.-2022US03558

PATIENT
  Sex: Female

DRUGS (3)
  1. ALENDRONATE [Suspect]
     Active Substance: ALENDRONATE SODIUM
     Indication: Osteoporosis
     Dosage: 35 MILLIGRAM X 2 PER WEEK TO MAKE WEEKLY DOSE TOTAL 70 MG
     Route: 065
  2. ALENDRONATE [Suspect]
     Active Substance: ALENDRONATE SODIUM
     Dosage: 70 MILLIGRAM ONCE WEEKLY
     Route: 065
     Dates: start: 2022
  3. CALCIUM [Concomitant]
     Active Substance: CALCIUM
     Indication: Osteoporosis
     Dosage: 600 MILLIGRAM, BID
     Route: 065

REACTIONS (2)
  - Red blood cell count increased [Unknown]
  - Wrong dose [Unknown]

NARRATIVE: CASE EVENT DATE: 20220101
